FAERS Safety Report 9549607 (Version 2)
Quarter: 2013Q4

REPORT INFORMATION
  Report Type: Spontaneous
  Country: IT (occurrence: IT)
  Receive Date: 20130924
  Receipt Date: 20131106
  Transmission Date: 20140711
  Serious: Yes (Other)
  Sender: FDA-Public Use
  Company Number: IT-TEVA-433259ISR

PATIENT
  Age: 61 Year
  Sex: Male

DRUGS (3)
  1. CEFAZOLINA TEVA 200 MG [Suspect]
     Indication: ANTIBIOTIC PROPHYLAXIS
     Dosage: 200 MILLIGRAM DAILY;
     Route: 042
     Dates: start: 20130909, end: 20130909
  2. ZYLORIC 300 MG [Concomitant]
     Dosage: 300 MILLIGRAM DAILY;
     Route: 048
  3. LOBIVON [Concomitant]
     Dosage: 2.5 MILLIGRAM DAILY;
     Route: 048

REACTIONS (3)
  - Loss of consciousness [Recovered/Resolved]
  - Bradycardia [Recovered/Resolved]
  - Pruritus [Recovered/Resolved]
